FAERS Safety Report 8680691 (Version 2)
Quarter: 2012Q4

REPORT INFORMATION
  Report Type: 
  Country: US (occurrence: US)
  Receive Date: 20120724
  Receipt Date: 20121025
  Transmission Date: 20130627
  Serious: Yes (Other)
  Sender: FDA-Public Use
  Company Number: US-B.I. PHARMACEUTICALS,INC./RIDGEFIELD-2012-BP-16131BP

PATIENT
  Sex: Female
  Weight: 69.85 kg

DRUGS (2)
  1. IPRATROPIUM BROMIDE [Suspect]
     Indication: CHRONIC OBSTRUCTIVE PULMONARY DISEASE
     Dates: start: 2007
  2. IPRATROPIUM BROMIDE [Suspect]
     Indication: EMPHYSEMA

REACTIONS (2)
  - Colon cancer [Unknown]
  - Haematochezia [Unknown]
